FAERS Safety Report 15742889 (Version 2)
Quarter: 2019Q1

REPORT INFORMATION
  Report Type: Report from Study
  Country: None (occurrence: US)
  Receive Date: 20181219
  Receipt Date: 20190115
  Transmission Date: 20190417
  Serious: Yes (Hospitalization, Other)
  Sender: FDA-Public Use
  Company Number: US-ABBVIE-18K-163-2591532-00

PATIENT
  Sex: Female

DRUGS (1)
  1. HUMIRA [Suspect]
     Active Substance: ADALIMUMAB
     Indication: CROHN^S DISEASE
     Route: 058

REACTIONS (13)
  - Ulcer haemorrhage [Unknown]
  - Cellulitis [Not Recovered/Not Resolved]
  - Leg amputation [Unknown]
  - Cardiac disorder [Unknown]
  - Swelling face [Unknown]
  - Haematemesis [Unknown]
  - Asthenia [Unknown]
  - Procedural complication [Unknown]
  - Lacrimation increased [Unknown]
  - Gallbladder hypofunction [Unknown]
  - Fluid retention [Unknown]
  - Diarrhoea [Unknown]
  - Transfusion [Unknown]
